FAERS Safety Report 7750284-7 (Version None)
Quarter: 2011Q3

REPORT INFORMATION
  Report Type: 
  Country: None (occurrence: None)
  Receive Date: 20110914
  Receipt Date: 20110901
  Transmission Date: 20111222
  Serious: Yes (Hospitalization)
  Sender: FDA-Public Use
  Company Number: US-ELI_LILLY_AND_COMPANY-US201104006133

PATIENT
  Sex: Female

DRUGS (5)
  1. HUMULIN N [Concomitant]
     Dosage: 30 U, EACH EVENING
     Dates: start: 19910101
  2. FISH OIL [Concomitant]
  3. CELEBREX [Concomitant]
  4. FORTEO [Suspect]
     Indication: OSTEOPOROSIS
     Dosage: 20 UG, QD
     Route: 065
     Dates: start: 20110101
  5. NIACIN [Concomitant]

REACTIONS (4)
  - FALL [None]
  - JOINT INJURY [None]
  - JOINT DISLOCATION [None]
  - WRIST FRACTURE [None]
